FAERS Safety Report 5664190-5 (Version None)
Quarter: 2008Q1

REPORT INFORMATION
  Report Type: 
  Country: None (occurrence: None)
  Receive Date: 20080312
  Receipt Date: 20080228
  Transmission Date: 20080703
  Serious: Yes (Hospitalization, Other)
  Sender: FDA-Public Use
  Company Number: 231769J08USA

PATIENT
  Age: 49 Year
  Sex: Female
  Weight: 58.9676 kg

DRUGS (4)
  1. REBIF [Suspect]
     Indication: MULTIPLE SCLEROSIS
     Dosage: 44 MCG, 3 IN 1 WEEKS, SUBCUTANEOUS
     Route: 058
     Dates: start: 20031117, end: 20070401
  2. PROVIGIL [Concomitant]
  3. 4-AMINOPYRIDINE (F-AMPRIDINE) [Concomitant]
  4. EVENING PRIMROSE       (OENOTHERA BIENNIS OIL) [Concomitant]

REACTIONS (4)
  - ANAEMIA [None]
  - COLON CANCER METASTATIC [None]
  - METASTASES TO LIVER [None]
  - METASTASES TO LYMPH NODES [None]
